FAERS Safety Report 5041009-7 (Version None)
Quarter: 2006Q3

REPORT INFORMATION
  Report Type: 
  Country: None (occurrence: None)
  Receive Date: 20060703
  Receipt Date: 20051223
  Transmission Date: 20061208
  Serious: No
  Sender: FDA-Public Use
  Company Number: US-GLAXOSMITHKLINE-A0586925A

PATIENT
  Age: 48 Year
  Sex: Male

DRUGS (4)
  1. PARNATE [Suspect]
     Indication: DEPRESSION
     Dosage: 60MG UNKNOWN
     Route: 048
     Dates: start: 20050815
  2. GABAPENTIN [Concomitant]
  3. VALIUM [Concomitant]
  4. TRIAZOLAM [Concomitant]

REACTIONS (1)
  - BREATH ODOUR [None]
